FAERS Safety Report 7172057-9 (Version None)
Quarter: 2010Q4

REPORT INFORMATION
  Report Type: 
  Country: None (occurrence: None)
  Receive Date: 20101217
  Receipt Date: 20100208
  Transmission Date: 20110411
  Serious: No
  Sender: FDA-Public Use
  Company Number: US-AMGEN-KDL391398

PATIENT

DRUGS (6)
  1. ENBREL [Suspect]
     Indication: PRODUCT USED FOR UNKNOWN INDICATION
     Dosage: 50 MG, QWK
     Route: 058
  2. ALENDRONATE SODIUM [Concomitant]
     Dosage: 70 MG, UNK
  3. LORAZEPAM [Concomitant]
     Dosage: .5 MG, UNK
  4. IBUPROFEN [Concomitant]
     Dosage: 200 MG, UNK
  5. CALCIUM CARBONATE/VITAMIN D [Concomitant]
     Dosage: 600 MG, UNK
  6. ACETAMINOPHEN [Concomitant]
     Dosage: 325 MG, UNK

REACTIONS (3)
  - HERPES ZOSTER [None]
  - INJECTION SITE ERYTHEMA [None]
  - INJECTION SITE SWELLING [None]
